FAERS Safety Report 8069853-2 (Version None)
Quarter: 2012Q1

REPORT INFORMATION
  Report Type: 
  Country: None (occurrence: None)
  Receive Date: 20120125
  Receipt Date: 20120120
  Transmission Date: 20120608
  Serious: No
  Sender: FDA-Public Use
  Company Number: US-PFIZER INC-2012017674

PATIENT
  Sex: Female
  Weight: 92.971 kg

DRUGS (9)
  1. CHANTIX [Suspect]
     Dosage: UNK
     Route: 048
     Dates: start: 20120101
  2. IBUPROFEN [Concomitant]
     Indication: PAIN
     Dosage: 800 MG, 2X/DAY
  3. BENADRYL [Concomitant]
     Indication: HYPERSENSITIVITY
     Dosage: 50 MG, DAILY
  4. ACETAMINOPHEN [Concomitant]
     Indication: PAIN
     Dosage: 1000 MG, 2X/DAY
  5. FLEXERIL [Concomitant]
     Indication: MUSCLE DISORDER
     Dosage: UNK
  6. ATIVAN [Concomitant]
     Indication: SLEEP DISORDER
     Dosage: 2 MG, DAILY
     Route: 048
  7. CHANTIX [Suspect]
     Indication: SMOKING CESSATION THERAPY
     Dosage: 0.5 MG, DAILY
     Route: 048
     Dates: start: 20120115, end: 20120101
  8. GABAPENTIN [Concomitant]
     Indication: PAIN
     Dosage: UNK,3X/DAY
  9. TRAZODONE [Concomitant]
     Indication: SLEEP DISORDER
     Dosage: 50 MG, DAILY

REACTIONS (2)
  - ANXIETY [None]
  - NERVOUSNESS [None]
